FAERS Safety Report 14371158 (Version 1)
Quarter: 2018Q1

REPORT INFORMATION
  Report Type: Spontaneous
  Country: US (occurrence: US)
  Receive Date: 20180110
  Receipt Date: 20180110
  Transmission Date: 20180509
  Serious: No
  Sender: FDA-Public Use
  Company Number: US-PFIZER INC-2018009503

PATIENT
  Age: 66 Year
  Sex: Male
  Weight: 74.84 kg

DRUGS (2)
  1. ADVIL PM [Suspect]
     Active Substance: DIPHENHYDRAMINE CITRATE\IBUPROFEN
     Indication: PAIN
  2. ADVIL PM [Suspect]
     Active Substance: DIPHENHYDRAMINE CITRATE\IBUPROFEN
     Indication: SLEEP DISORDER
     Dosage: ONE LIQUI-GEL, AT NIGHT
     Route: 048
     Dates: start: 2016

REACTIONS (7)
  - Foreign body in respiratory tract [Recovered/Resolved]
  - Product size issue [Not Recovered/Not Resolved]
  - Poor quality drug administered [Recovered/Resolved]
  - Product use complaint [Not Recovered/Not Resolved]
  - Dysphagia [Not Recovered/Not Resolved]
  - Throat irritation [Recovered/Resolved]
  - Product physical issue [Recovered/Resolved]

NARRATIVE: CASE EVENT DATE: 2016
